FAERS Safety Report 9334933 (Version 1)
Quarter: 2013Q2

REPORT INFORMATION
  Report Type: Spontaneous
  Country: US (occurrence: US)
  Receive Date: 20130606
  Receipt Date: 20130606
  Transmission Date: 20140414
  Serious: No
  Sender: FDA-Public Use
  Company Number: US-AMGEN-USASP2013036354

PATIENT
  Age: 69 Year
  Sex: Male

DRUGS (8)
  1. PROLIA [Suspect]
     Indication: BONE LOSS
     Dosage: 60 MG, UNK
     Dates: start: 20120604
  2. LUPRON [Concomitant]
     Dosage: UNK UNK, Q3MO
     Dates: start: 201205
  3. CALCIUM [Concomitant]
     Dosage: 600 MG, BID
  4. MULTIVITAMIN                       /00097801/ [Concomitant]
     Dosage: UNK UNK, BID
  5. BABY ASPIRIN [Concomitant]
  6. ZOCOR [Concomitant]
  7. TRAZODONE [Concomitant]
     Dosage: 50 MG, UNK
  8. KLONOPIN [Concomitant]
     Dosage: 0.5 MG, UNK

REACTIONS (1)
  - Dental caries [Unknown]
